FAERS Safety Report 4707282-7 (Version None)
Quarter: 2005Q3

REPORT INFORMATION
  Report Type: 
  Country: None (occurrence: None)
  Receive Date: 20050706
  Receipt Date: 20050602
  Transmission Date: 20060218
  Serious: Yes (Other)
  Sender: FDA-Public Use
  Company Number: PHBS2005CH07861

PATIENT
  Age: 53 Year
  Sex: Female

DRUGS (6)
  1. ZOMETA [Suspect]
     Indication: METASTASES TO BONE
     Dosage: 4 MG, QMO
     Route: 042
     Dates: start: 20030521, end: 20050523
  2. HERCEPTIN [Concomitant]
     Indication: BREAST CANCER METASTATIC
     Dosage: 116 MG, QW
     Route: 042
     Dates: start: 20031027
  3. AREDIA [Suspect]
     Indication: METASTASES TO BONE
     Dosage: 90 MG, QMO
     Route: 042
     Dates: start: 20020506, end: 20030409
  4. FEMARA [Concomitant]
     Indication: BREAST CANCER METASTATIC
     Dosage: 2.5 MG/D
     Route: 065
     Dates: start: 20020506, end: 20030410
  5. AROMASIN [Concomitant]
     Indication: BREAST CANCER METASTATIC
     Dosage: 25 MG/D
     Route: 065
     Dates: start: 20030411, end: 20041022
  6. TAXOL [Concomitant]
     Indication: BREAST CANCER METASTATIC
     Dosage: 130 MG, TIW
     Route: 042
     Dates: start: 20031027, end: 20040415

REACTIONS (3)
  - ASEPTIC NECROSIS BONE [None]
  - ORAL SURGERY [None]
  - OSTEOMYELITIS [None]
